FAERS Safety Report 6883402-3 (Version None)
Quarter: 2010Q3

REPORT INFORMATION
  Report Type: 
  Country: None (occurrence: None)
  Receive Date: 20100729
  Receipt Date: 20100722
  Transmission Date: 20110219
  Serious: Yes (Hospitalization)
  Sender: FDA-Public Use
  Company Number: ES-GILEAD-2010-0028940

PATIENT
  Age: 42 Year
  Sex: Female

DRUGS (9)
  1. TRUVADA [Suspect]
     Indication: HIV INFECTION
  2. KALETRA [Concomitant]
     Indication: HIV INFECTION
  3. SAQUINAVIR [Concomitant]
     Indication: HIV INFECTION
  4. CLOTIAPIN [Concomitant]
  5. DIAZEPAM [Concomitant]
  6. BIPERIDEN HYDROCHLORIDE TAB [Concomitant]
  7. ESCITALOPRAM [Concomitant]
  8. GABAPENTIN [Concomitant]
  9. OLANZAPINE [Concomitant]

REACTIONS (2)
  - HYPOKALAEMIA [None]
  - METABOLIC ALKALOSIS [None]
